FAERS Safety Report 19599707 (Version 1)
Quarter: 2021Q3

REPORT INFORMATION
  Report Type: Spontaneous
  Country: FR (occurrence: FR)
  Receive Date: 20210722
  Receipt Date: 20210722
  Transmission Date: 20211014
  Serious: Yes (Life-Threatening)
  Sender: FDA-Public Use
  Company Number: FR-ALSI-2021000220

PATIENT
  Age: 59 Year
  Sex: Male
  Weight: 64 kg

DRUGS (2)
  1. PRODUCT IS IDENTIFIED AS KALINOX WHICH IS A 50%:50% MIXTURE OF NITROUS [Suspect]
     Active Substance: NITROUS OXIDE\OXYGEN
     Indication: OXYGEN THERAPY
     Route: 055
     Dates: start: 20210521, end: 20210521
  2. KALINOX [Suspect]
     Active Substance: NITROUS OXIDE\OXYGEN
     Route: 055
     Dates: start: 20210521, end: 20210521

REACTIONS (1)
  - Oxygen saturation decreased [Recovered/Resolved]
